FAERS Safety Report 4877157-1 (Version None)
Quarter: 2005Q4

REPORT INFORMATION
  Report Type: 
  Country: None (occurrence: None)
  Receive Date: 20051206
  Receipt Date: 20050823
  Transmission Date: 20060501
  Serious: No
  Sender: FDA-Public Use
  Company Number: USA0508105601

PATIENT
  Age: 92 Year
  Sex: Female

DRUGS (5)
  1. CYMBALTA [Suspect]
     Dosage: 30 MG
     Dates: start: 20050725, end: 20050726
  2. FLEXERIL [Concomitant]
  3. ACETAMINOPHEN AND HYDROCODONE BITARTRATE [Concomitant]
  4. ATENOLOL [Concomitant]
  5. PEPCID [Concomitant]

REACTIONS (1)
  - HALLUCINATION, VISUAL [None]
